FAERS Safety Report 14502785 (Version 1)
Quarter: 2018Q1

REPORT INFORMATION
  Report Type: Spontaneous
  Country: FR (occurrence: FR)
  Receive Date: 20180208
  Receipt Date: 20180208
  Transmission Date: 20180509
  Serious: Yes (Hospitalization)
  Sender: FDA-Public Use
  Company Number: FR-CONCORDIA PHARMACEUTICALS INC.-E2B_00009762

PATIENT
  Age: 55 Year
  Sex: Female
  Weight: 45.1 kg

DRUGS (17)
  1. DUOPLAVIN 75 MG/75 MG, COMPRIME PELLICULE [Concomitant]
     Route: 048
  2. LOVENOX 4 000 UI ANTI-XA/0.4 ML, SOLUTION INJECTABLE EN CARTOUCHE [Concomitant]
     Route: 023
  3. ONBREZ BREEZHALER 150 MICROGRAMMES, POUDRE POUR INHALATION EN GELULE [Concomitant]
     Route: 055
  4. MAGNE B6 [Concomitant]
     Active Substance: MAGNESIUM\PYRIDOXINE
     Route: 048
  5. PANTOPRAZOLE [Concomitant]
     Active Substance: PANTOPRAZOLE
     Route: 048
  6. LAMALINE [Concomitant]
     Active Substance: ACETAMINOPHEN\CAFFEINE\OPIUM
     Route: 048
  7. TILDIEM 60 MG, COMPRIME [Concomitant]
     Route: 048
  8. DIGOXIN. [Suspect]
     Active Substance: DIGOXIN
     Indication: CARDIOMYOPATHY
     Route: 048
     Dates: start: 20171224, end: 20180103
  9. RIVOTRIL 2 MG, COMPRIME QUADRISECABLE [Concomitant]
     Route: 048
  10. FORSTEO [Concomitant]
     Active Substance: TERIPARATIDE
     Route: 040
  11. ATORVASTATINE [Concomitant]
     Active Substance: ATORVASTATIN
     Route: 048
  12. CALTRATE WITH VITAMIN D [Concomitant]
     Active Substance: CALCIUM CARBONATE\CHOLECALCIFEROL
     Route: 048
  13. DOLIPRANE [Concomitant]
     Active Substance: ACETAMINOPHEN
     Route: 048
  14. ACTISKENAN 10 MG, GELULE [Concomitant]
     Active Substance: MORPHINE SULFATE
     Route: 048
  15. CEFOXITIN [Concomitant]
     Active Substance: CEFOXITIN SODIUM
     Route: 041
  16. AZATHIOPRINE. [Concomitant]
     Active Substance: AZATHIOPRINE
     Route: 048
  17. PROPYLEX 50 MG, COMPRIME [Concomitant]
     Route: 048

REACTIONS (2)
  - Bradycardia [Recovered/Resolved]
  - Cardioactive drug level increased [Recovered/Resolved]

NARRATIVE: CASE EVENT DATE: 20180104
